FAERS Safety Report 13205271 (Version 1)
Quarter: 2017Q1

REPORT INFORMATION
  Report Type: Spontaneous
  Country: CN (occurrence: CN)
  Receive Date: 20170209
  Receipt Date: 20170209
  Transmission Date: 20170428
  Serious: Yes (Hospitalization)
  Sender: FDA-Public Use
  Company Number: CN-PFIZER INC-2017055333

PATIENT
  Age: 55 Year
  Sex: Female
  Weight: 66 kg

DRUGS (2)
  1. GABAPENTIN. [Suspect]
     Active Substance: GABAPENTIN
     Indication: NEURALGIA
     Dosage: 0.3 G, 2X/DAY
     Route: 048
     Dates: start: 20160617, end: 20160621
  2. CELEBREX [Suspect]
     Active Substance: CELECOXIB
     Indication: NEURALGIA
     Dosage: 0.2 G, 2X/DAY
     Route: 048
     Dates: start: 20160617, end: 20160621

REACTIONS (3)
  - Erythema multiforme [Recovering/Resolving]
  - Dermatitis [Recovering/Resolving]
  - Asthenia [Recovering/Resolving]

NARRATIVE: CASE EVENT DATE: 20160620
